FAERS Safety Report 7961655-8 (Version None)
Quarter: 2011Q4

REPORT INFORMATION
  Report Type: 
  Country: None (occurrence: None)
  Receive Date: 20111207
  Receipt Date: 20111128
  Transmission Date: 20120403
  Serious: Yes (Death)
  Sender: FDA-Public Use
  Company Number: FR-SANOFI-AVENTIS-2011SA077832

PATIENT
  Age: 34 Year
  Sex: Female

DRUGS (9)
  1. VANCOMYCIN [Suspect]
     Route: 042
     Dates: start: 20110930, end: 20111007
  2. CIPROFLOXACIN [Suspect]
     Route: 065
     Dates: start: 20110927, end: 20111007
  3. NOZINAN [Suspect]
     Route: 048
     Dates: start: 20110927, end: 20111007
  4. LASIX [Suspect]
     Route: 065
     Dates: start: 20111004, end: 20111007
  5. IMIPENEM AND CILASTATIN SODIUM [Suspect]
     Route: 042
     Dates: start: 20110927, end: 20111008
  6. CALCIPARINE [Suspect]
     Route: 058
     Dates: start: 20110922, end: 20111006
  7. ACETAMINOPHEN [Suspect]
     Route: 042
     Dates: start: 20111003, end: 20111007
  8. CATAPRES [Suspect]
     Route: 065
     Dates: start: 20110927, end: 20111007
  9. ULTIVA [Suspect]
     Route: 042
     Dates: start: 20110929, end: 20111008

REACTIONS (3)
  - CEREBRAL HAEMATOMA [None]
  - COMA [None]
  - THROMBOCYTOPENIA [None]
